FAERS Safety Report 9795321 (Version 2)
Quarter: 2014Q1

REPORT INFORMATION
  Report Type: Spontaneous
  Country: US (occurrence: US)
  Receive Date: 20140103
  Receipt Date: 20140103
  Transmission Date: 20141002
  Serious: Yes (Death)
  Sender: FDA-Public Use
  Company Number: US-BEH-2013038265

PATIENT
  Age: 62 Year
  Sex: Male

DRUGS (2)
  1. INTRAVENOUS IMMUNOGLOBULIN [Suspect]
     Indication: AUTOIMMUNE HAEMOLYTIC ANAEMIA
  2. STEROIDS [Concomitant]
     Indication: AUTOIMMUNE HAEMOLYTIC ANAEMIA
     Dosage: HIGH DOSE

REACTIONS (1)
  - Drug ineffective for unapproved indication [Fatal]
